FAERS Safety Report 7868858-1 (Version None)
Quarter: 2011Q4

REPORT INFORMATION
  Report Type: 
  Country: None (occurrence: None)
  Receive Date: 20111028
  Receipt Date: 20101221
  Transmission Date: 20120403
  Serious: No
  Sender: FDA-Public Use
  Company Number: US-AMGEN-USASP2010008333

PATIENT
  Sex: Female
  Weight: 56.689 kg

DRUGS (2)
  1. ENBREL [Suspect]
     Indication: RHEUMATOID ARTHRITIS
     Dosage: 50 MG, QWK
     Dates: start: 20100817
  2. METHOTREXATE [Concomitant]

REACTIONS (2)
  - HERNIA [None]
  - HAEMATOCHEZIA [None]
